FAERS Safety Report 19173296 (Version 4)
Quarter: 2021Q4

REPORT INFORMATION
  Report Type: Spontaneous
  Country: US (occurrence: US)
  Receive Date: 20210423
  Receipt Date: 20211223
  Transmission Date: 20220304
  Serious: Yes (Hospitalization)
  Sender: FDA-Public Use
  Company Number: US-PHARMING-PHAUS2021000200

PATIENT

DRUGS (3)
  1. RUCONEST [Suspect]
     Active Substance: HUMAN C1-ESTERASE INHIBITOR
     Indication: Hereditary angioedema
     Dosage: 3150 IU, AS NEEDED
     Route: 042
     Dates: start: 20170110
  2. RUCONEST [Suspect]
     Active Substance: HUMAN C1-ESTERASE INHIBITOR
     Dosage: 3150 IU, AS NEEDED NO MORE THAN TWO DOSES IN 24 HOURS
     Route: 042
     Dates: start: 201701
  3. RUCONEST [Suspect]
     Active Substance: HUMAN C1-ESTERASE INHIBITOR
     Dosage: 3150 IU, AS NEEDED NO MORE THAN TWO DOSES IN 24 HOURS
     Route: 042
     Dates: start: 20170110

REACTIONS (1)
  - Maternal exposure during pregnancy [Unknown]
